FAERS Safety Report 7427923-3 (Version None)
Quarter: 2011Q2

REPORT INFORMATION
  Report Type: 
  Country: None (occurrence: None)
  Receive Date: 20110421
  Receipt Date: 20110328
  Transmission Date: 20111010
  Serious: Yes (Hospitalization, Other)
  Sender: FDA-Public Use
  Company Number: US-BAYER-201034068NA

PATIENT
  Age: 41 Year
  Sex: Female

DRUGS (5)
  1. ACIPHEX [Concomitant]
     Indication: GASTRITIS
  2. YASMIN [Suspect]
     Indication: DYSMENORRHOEA
     Route: 048
  3. ALBUTEROL [Concomitant]
  4. ALLEGRA [Concomitant]
  5. YAZ [Suspect]
     Indication: DYSMENORRHOEA
     Route: 048

REACTIONS (4)
  - CHOLECYSTITIS CHRONIC [None]
  - CHOLELITHIASIS [None]
  - DEEP VEIN THROMBOSIS [None]
  - CHOLECYSTECTOMY [None]
